FAERS Safety Report 18652912 (Version 2)
Quarter: 2025Q2

REPORT INFORMATION
  Report Type: Spontaneous
  Country: HU (occurrence: HU)
  Receive Date: 20201223
  Receipt Date: 20250401
  Transmission Date: 20250717
  Serious: Yes (Hospitalization, Other)
  Sender: TEVA
  Company Number: HU-EMA-DD-20201209-KAKWANI_D-121202

PATIENT
  Age: 45 Year
  Sex: Female

DRUGS (12)
  1. FULVESTRANT [Suspect]
     Active Substance: FULVESTRANT
     Indication: Breast cancer
     Route: 065
     Dates: start: 20200131
  2. AMOXICILLIN\CLAVULANIC ACID [Suspect]
     Active Substance: AMOXICILLIN\CLAVULANIC ACID
     Indication: Upper respiratory tract infection
     Route: 065
     Dates: start: 2020
  3. RIBOCICLIB [Suspect]
     Active Substance: RIBOCICLIB
     Indication: Breast cancer
     Route: 065
     Dates: start: 20200730
  4. RIBOCICLIB [Suspect]
     Active Substance: RIBOCICLIB
     Indication: Breast cancer
     Route: 065
     Dates: start: 20200131
  5. LETROZOLE [Suspect]
     Active Substance: LETROZOLE
     Indication: Breast cancer
     Route: 065
     Dates: start: 2018
  6. CARVEDILOL [Suspect]
     Active Substance: CARVEDILOL
     Indication: Product used for unknown indication
     Dosage: 12.5 MG, BID
     Route: 065
  7. TELMISARTAN [Concomitant]
     Active Substance: TELMISARTAN
     Indication: Product used for unknown indication
     Route: 065
  8. CALCIUM [Concomitant]
     Active Substance: CALCIUM
     Indication: Product used for unknown indication
     Route: 065
  9. ZOLEDRONIC ACID [Suspect]
     Active Substance: ZOLEDRONIC ACID
     Indication: Breast cancer
     Route: 042
     Dates: start: 20200409
  10. RILMENIDINE [Concomitant]
     Active Substance: RILMENIDINE
     Indication: Product used for unknown indication
     Route: 065
  11. CHOLECALCIFEROL [Suspect]
     Active Substance: CHOLECALCIFEROL
     Indication: Product used for unknown indication
     Route: 065
  12. IBANDRONATE SODIUM [Suspect]
     Active Substance: IBANDRONATE SODIUM
     Indication: Breast cancer
     Route: 048

REACTIONS (26)
  - Neutropenia [Unknown]
  - Carcinoembryonic antigen increased [Unknown]
  - Metastases to bone [Unknown]
  - Arthralgia [Unknown]
  - C-reactive protein increased [Unknown]
  - Haematocrit decreased [Recovered/Resolved]
  - Pyelitis [Unknown]
  - Renal impairment [Recovering/Resolving]
  - Red blood cell count decreased [Unknown]
  - Haematocrit decreased [Recovered/Resolved]
  - White blood cell count increased [Unknown]
  - Breast cancer recurrent [Recovering/Resolving]
  - Upper respiratory tract infection [Unknown]
  - Isosthenuria [Unknown]
  - Aspartate aminotransferase increased [Unknown]
  - Carbohydrate antigen 15-3 increased [Unknown]
  - Blood creatinine increased [Unknown]
  - Bladder hypertrophy [Unknown]
  - Electrocardiogram PR shortened [Unknown]
  - Pyrexia [Unknown]
  - Hydronephrosis [Unknown]
  - Glomerular filtration rate decreased [Unknown]
  - Creatinine renal clearance increased [Unknown]
  - Haemoglobin decreased [Recovered/Resolved]
  - Cardiomegaly [Unknown]
  - Thrombocytopenia [Unknown]

NARRATIVE: CASE EVENT DATE: 20181113
